FAERS Safety Report 9405682 (Version 1)
Quarter: 2013Q3

REPORT INFORMATION
  Report Type: Spontaneous
  Country: US (occurrence: US)
  Receive Date: 20130717
  Receipt Date: 20130717
  Transmission Date: 20140515
  Serious: No
  Sender: FDA-Public Use
  Company Number: US-009507513-1307USA005041

PATIENT
  Age: 87 Year
  Sex: Female

DRUGS (2)
  1. CLARITIN [Suspect]
     Indication: INCREASED UPPER AIRWAY SECRETION
     Dosage: UNK, UNKNOWN
     Route: 048
     Dates: start: 2010
  2. CLARITIN [Suspect]
     Indication: MEDICAL OBSERVATION

REACTIONS (2)
  - Mouth injury [Not Recovered/Not Resolved]
  - Off label use [Unknown]
